FAERS Safety Report 14368634 (Version 2)
Quarter: 2018Q1

REPORT INFORMATION
  Report Type: Spontaneous
  Country: FR (occurrence: FR)
  Receive Date: 20180109
  Receipt Date: 20180115
  Transmission Date: 20180509
  Serious: Yes (Other)
  Sender: FDA-Public Use
  Company Number: FR-ALLERGAN-1800521US

PATIENT
  Age: 40 Year
  Sex: Male

DRUGS (1)
  1. OZURDEX [Suspect]
     Active Substance: DEXAMETHASONE
     Indication: CYSTOID MACULAR OEDEMA
     Dosage: 0.7 MG, SINGLE
     Route: 031
     Dates: start: 20171226, end: 20171226

REACTIONS (6)
  - Intraocular pressure decreased [Unknown]
  - Visual impairment [Unknown]
  - Vitreous loss [Unknown]
  - Off label use [Unknown]
  - Scleral disorder [Unknown]
  - Choroidal detachment [Unknown]

NARRATIVE: CASE EVENT DATE: 20171228
